FAERS Safety Report 5332552-1 (Version None)
Quarter: 2007Q2

REPORT INFORMATION
  Report Type: 
  Country: None (occurrence: None)
  Receive Date: 20070523
  Receipt Date: 20070515
  Transmission Date: 20071010
  Serious: Yes (Hospitalization)
  Sender: FDA-Public Use
  Company Number: US-ABBOTT-07P-163-0368253-00

PATIENT
  Age: 66 Year
  Sex: Female

DRUGS (1)
  1. PARICALCITOL [Suspect]
     Indication: HYPERPARATHYROIDISM SECONDARY
     Route: 065

REACTIONS (2)
  - DELIRIUM [None]
  - HYPERPARATHYROIDISM TERTIARY [None]
